FAERS Safety Report 10261391 (Version 2)
Quarter: 2014Q3

REPORT INFORMATION
  Report Type: Spontaneous
  Country: KR (occurrence: KR)
  Receive Date: 20140626
  Receipt Date: 20140702
  Transmission Date: 20150326
  Serious: Yes (Hospitalization)
  Sender: FDA-Public Use
  Company Number: KR-BAYER-2014-089911

PATIENT
  Sex: Male

DRUGS (3)
  1. NEXAVAR [Suspect]
     Active Substance: SORAFENIB
     Indication: HEPATOCELLULAR CARCINOMA
     Dosage: 2 DF, BID
     Route: 048
  2. NEXAVAR [Suspect]
     Active Substance: SORAFENIB
     Indication: HEPATOCELLULAR CARCINOMA
     Dosage: 2 DF, BID
     Route: 048
  3. DUPHALAC [Suspect]
     Active Substance: LACTULOSE
     Indication: COMA HEPATIC
     Dosage: 30CC, TID
     Route: 048

REACTIONS (5)
  - Hyperkeratosis [None]
  - Arthralgia [None]
  - Coma hepatic [None]
  - Constipation [None]
  - Diarrhoea [None]
